FAERS Safety Report 8372511-8 (Version None)
Quarter: 2012Q2

REPORT INFORMATION
  Report Type: 
  Country: None (occurrence: None)
  Receive Date: 20120521
  Receipt Date: 20120511
  Transmission Date: 20120825
  Serious: Yes (Hospitalization, Other)
  Sender: FDA-Public Use
  Company Number: PHHY2012JP023496

PATIENT
  Sex: Female
  Weight: 43 kg

DRUGS (16)
  1. TEGRETOL [Suspect]
     Dosage: 0.6 G, DAILY
     Route: 048
     Dates: start: 20120223, end: 20120228
  2. TEGRETOL [Suspect]
     Indication: EPILEPSY
     Dosage: 100 MG, TID
     Route: 048
     Dates: end: 20120222
  3. HALOPERIDOL [Concomitant]
     Dosage: 6 MG, UNK
     Route: 048
     Dates: start: 20120222
  4. LODOPIN [Concomitant]
     Dosage: 300 MG, UNK
     Route: 048
     Dates: start: 20120222
  5. TASMOLIN [Concomitant]
     Dosage: 3 MG, UNK
     Route: 048
     Dates: start: 20120222
  6. VALPROIC ACID [Concomitant]
     Dosage: 0.75 G, UNK
     Route: 048
     Dates: start: 20120223, end: 20120228
  7. LEVOTOMIN [Concomitant]
     Dosage: 25 MG, UNK
     Route: 048
     Dates: start: 20120222
  8. SILECE [Concomitant]
     Dosage: 2 MG, UNK
     Route: 048
     Dates: start: 20120222
  9. ZYPREXA [Concomitant]
     Dosage: 20 MG, UNK
     Route: 048
     Dates: start: 20120222
  10. PROMETHAZINE HCL [Concomitant]
     Dosage: 25 MG, UNK
     Route: 048
     Dates: start: 20120222
  11. VALERIN [Concomitant]
     Dosage: 300 MG, UNK
     Route: 048
     Dates: start: 20120222
  12. ATARAX [Concomitant]
     Dosage: 75 MG, UNK
     Route: 048
     Dates: start: 20120222
  13. UBRETID [Concomitant]
     Dosage: 5 MG, UNK
     Route: 048
     Dates: start: 20120222
  14. PURSENNID [Concomitant]
     Dosage: 48 MG, UNK
     Route: 048
     Dates: start: 20120222
  15. LUNAPRON [Concomitant]
     Dosage: 36 MG, UNK
     Route: 048
     Dates: start: 20120222
  16. FERROUS CITRATE [Concomitant]
     Dosage: 100 MG, UNK
     Route: 048
     Dates: start: 20120222

REACTIONS (13)
  - ALTERED STATE OF CONSCIOUSNESS [None]
  - VIRAL INFECTION [None]
  - RED BLOOD CELL COUNT INCREASED [None]
  - BLOOD LACTATE DEHYDROGENASE INCREASED [None]
  - BLOOD PRESSURE INCREASED [None]
  - WHITE BLOOD CELL COUNT INCREASED [None]
  - HEART RATE INCREASED [None]
  - MENINGITIS ASEPTIC [None]
  - PYREXIA [None]
  - GAMMA-GLUTAMYLTRANSFERASE INCREASED [None]
  - BLOOD SODIUM DECREASED [None]
  - ALANINE AMINOTRANSFERASE INCREASED [None]
  - CONVULSION [None]
